FAERS Safety Report 5026042-3 (Version None)
Quarter: 2006Q2

REPORT INFORMATION
  Report Type: 
  Country: None (occurrence: None)
  Receive Date: 20060614
  Receipt Date: 20060608
  Transmission Date: 20061013
  Serious: Yes (Other)
  Sender: FDA-Public Use
  Company Number: US-BRISTOL-MYERS SQUIBB COMPANY-13406947

PATIENT
  Age: 79 Year
  Sex: Female

DRUGS (13)
  1. ORENCIA [Suspect]
     Indication: RHEUMATOID ARTHRITIS
     Route: 042
  2. PREDNISONE [Concomitant]
  3. PROTONIX [Concomitant]
  4. ALLOPURINOL [Concomitant]
  5. DIOVAN [Concomitant]
  6. ALBUTEROL [Concomitant]
  7. LASIX [Concomitant]
  8. LIPITOR [Concomitant]
  9. METOPROLOL [Concomitant]
  10. SINGULAIR [Concomitant]
  11. ECOTRIN [Concomitant]
  12. TYLENOL W/ CODEINE NO. 3 [Concomitant]
  13. PLAVIX [Concomitant]

REACTIONS (2)
  - CHEST DISCOMFORT [None]
  - DYSPNOEA [None]
